FAERS Safety Report 6071994-6 (Version None)
Quarter: 2009Q1

REPORT INFORMATION
  Report Type: 
  Country: None (occurrence: None)
  Receive Date: 20090210
  Receipt Date: 20090204
  Transmission Date: 20090719
  Serious: Yes (Hospitalization)
  Sender: FDA-Public Use
  Company Number: US-BIOGENIDEC-2009BI000873

PATIENT
  Age: 37 Year
  Sex: Female
  Weight: 58 kg

DRUGS (3)
  1. AVONEX [Suspect]
     Indication: MULTIPLE SCLEROSIS
     Route: 030
     Dates: start: 20080815
  2. PAMPRIN TAB [Concomitant]
     Indication: DYSMENORRHOEA
     Dates: end: 20080901
  3. IRON PILLS [Concomitant]
     Indication: ANAEMIA
     Dates: start: 20080901, end: 20081101

REACTIONS (2)
  - INFLUENZA LIKE ILLNESS [None]
  - MENORRHAGIA [None]
